FAERS Safety Report 23875457 (Version 1)
Quarter: 2024Q2

REPORT INFORMATION
  Report Type: Spontaneous
  Country: MN (occurrence: None)
  Receive Date: 20240520
  Receipt Date: 20240520
  Transmission Date: 20240716
  Serious: Yes (Other)
  Sender: FDA-Public Use
  Company Number: 2024A116820

PATIENT
  Age: 14840 Day
  Sex: Female
  Weight: 85 kg

DRUGS (5)
  1. DAPAGLIFLOZIN [Suspect]
     Active Substance: DAPAGLIFLOZIN
     Indication: Glomerulonephritis
     Dosage: 10.0MG UNKNOWN
     Route: 048
     Dates: start: 20240509, end: 20240513
  2. VALSARTAN [Concomitant]
     Active Substance: VALSARTAN
     Dosage: 160 MG DAILY SINCE 2017
  3. CLOPI-DENK 75 [Concomitant]
     Dosage: 75 MG DAILY SINCE 2017
  4. ATORVASTATIN CALCIUM [Concomitant]
     Active Substance: ATORVASTATIN CALCIUM
     Dosage: 40 MG DAILY SINCE 2017
  5. VITAMIN D3 [Concomitant]
     Active Substance: CHOLECALCIFEROL
     Dosage: 2000IU DAILY USED FOR 1 MONTH UNKNOWN

REACTIONS (2)
  - Drug eruption [Unknown]
  - Off label use [Unknown]

NARRATIVE: CASE EVENT DATE: 20240509
